FAERS Safety Report 5787708-0 (Version None)
Quarter: 2008Q2

REPORT INFORMATION
  Report Type: 
  Country: None (occurrence: None)
  Receive Date: 20080625
  Receipt Date: 20071029
  Transmission Date: 20081010
  Serious: No
  Sender: FDA-Public Use
  Company Number: US-ASTRAZENECA-2007UW25037

PATIENT
  Age: 9 Year
  Sex: Female
  Weight: 20.4 kg

DRUGS (6)
  1. PULMICORT FLEXHALER [Suspect]
     Indication: ASTHMA
     Route: 055
  2. SINGULAIR [Concomitant]
  3. ALBUTEROL [Concomitant]
  4. BENADRYL [Concomitant]
  5. HYDROXYZINE [Concomitant]
  6. TOPICAL STEROID [Concomitant]

REACTIONS (2)
  - DYSPNOEA [None]
  - ECZEMA [None]
